FAERS Safety Report 9392321 (Version 1)
Quarter: 2013Q3

REPORT INFORMATION
  Report Type: Spontaneous
  Country: US (occurrence: US)
  Receive Date: 20130710
  Receipt Date: 20130710
  Transmission Date: 20140515
  Serious: No
  Sender: FDA-Public Use
  Company Number: US-B.I. PHARMACEUTICALS,INC./RIDGEFIELD-2013-BI-19674BP

PATIENT
  Age: 89 Year
  Sex: Female

DRUGS (7)
  1. COMBIVENT [Suspect]
     Indication: DYSPNOEA
     Dosage: STRENGTH: 20 MCG / 100 MCG; DAILY DOSE: 80 MCG/400 MCG
     Route: 055
     Dates: start: 20130705, end: 20130705
  2. COMBIVENT [Suspect]
     Indication: DYSPNOEA
     Dosage: STRENGTH: 18 MCG / 103 MCG; DAILY DOSE: 144 MCG/824 MCG
     Route: 055
     Dates: start: 2004, end: 20130704
  3. THEOPHYLLINE [Concomitant]
     Indication: DYSPNOEA
     Dosage: 400 MG
     Route: 048
     Dates: start: 2000
  4. ASPIRIN [Concomitant]
     Indication: CARDIAC DISORDER
     Dosage: 81 MG
     Route: 048
     Dates: start: 2003
  5. NIFEDIPINE [Concomitant]
     Indication: DYSPNOEA
     Dosage: 60 MG
     Route: 048
     Dates: start: 2003
  6. LUMIGAN [Concomitant]
     Indication: GLAUCOMA
     Dosage: 5 MG
     Route: 048
     Dates: start: 2003
  7. SIMVASTATIN [Concomitant]
     Indication: BLOOD CHOLESTEROL INCREASED
     Dosage: 40 MG
     Route: 048
     Dates: start: 2003

REACTIONS (2)
  - Vomiting [Not Recovered/Not Resolved]
  - Abdominal discomfort [Not Recovered/Not Resolved]
